FAERS Safety Report 9699053 (Version 1)
Quarter: 2013Q4

REPORT INFORMATION
  Report Type: Spontaneous
  Country: DK (occurrence: DK)
  Receive Date: 20131120
  Receipt Date: 20131120
  Transmission Date: 20140711
  Serious: Yes (Life-Threatening, Hospitalization, Disabling)
  Sender: FDA-Public Use
  Company Number: DK-ACTAVIS-2013-20763

PATIENT
  Age: 80 Year
  Sex: Male

DRUGS (9)
  1. CEFUROXIME SODIUM (UNKNOWN) [Suspect]
     Indication: INFECTION PROPHYLAXIS
     Dosage: 750 MG, QID
     Route: 042
  2. CEFUROXIME SODIUM (UNKNOWN) [Suspect]
     Dosage: 1.5 G, SINGLE
     Route: 042
  3. CEFALEXIN (UNKNOWN) [Suspect]
     Indication: INFECTION PROPHYLAXIS
     Dosage: 1 G, TID
     Route: 048
  4. BICALUTAMIDE [Concomitant]
     Indication: PRODUCT USED FOR UNKNOWN INDICATION
     Dosage: UNK
     Route: 065
  5. SOLIFENACIN [Concomitant]
     Indication: PRODUCT USED FOR UNKNOWN INDICATION
     Dosage: UNK
     Route: 065
  6. TAMSULOSIN [Concomitant]
     Indication: PRODUCT USED FOR UNKNOWN INDICATION
     Dosage: UNK
     Route: 065
  7. SIMVASTATIN [Concomitant]
     Indication: PRODUCT USED FOR UNKNOWN INDICATION
     Dosage: UNK
     Route: 065
  8. LOSARTAN [Concomitant]
     Indication: PRODUCT USED FOR UNKNOWN INDICATION
     Dosage: UNK
     Route: 065
  9. CLOPIDOGREL [Concomitant]
     Indication: PRODUCT USED FOR UNKNOWN INDICATION
     Dosage: UNK
     Route: 065

REACTIONS (2)
  - Pseudomembranous colitis [Unknown]
  - Clostridium difficile sepsis [Unknown]
